FAERS Safety Report 8975039 (Version 2)
Quarter: 2013Q1

REPORT INFORMATION
  Report Type: Spontaneous
  Country: JP (occurrence: JP)
  Receive Date: 20121220
  Receipt Date: 20130103
  Transmission Date: 20140127
  Serious: Yes (Hospitalization, Other)
  Sender: FDA-Public Use
  Company Number: JP-ELI_LILLY_AND_COMPANY-JP201212002776

PATIENT
  Age: 86 Year
  Sex: Female

DRUGS (9)
  1. FORTEO [Suspect]
     Indication: OSTEOPOROSIS
     Dosage: 20 UG, QD
     Route: 058
  2. CALFINA [Concomitant]
     Indication: OSTEOPOROSIS
     Dosage: UNK
     Route: 048
  3. AMLODIN [Concomitant]
     Indication: HYPERTENSION
     Dosage: UNK
     Route: 048
  4. LOXOMARIN [Concomitant]
     Dosage: UNK
     Route: 048
  5. MYOPERISON [Concomitant]
     Indication: BACK PAIN
     Dosage: UNK
     Route: 048
  6. YOKUKAN-SAN [Concomitant]
     Indication: DEPRESSION
     Dosage: UNK
     Route: 048
  7. DEPROMEL [Concomitant]
     Indication: DEPRESSION
     Route: 048
  8. SULPIRIDE [Concomitant]
     Indication: DEPRESSION
     Route: 048
  9. SPIRIVA [Concomitant]
     Dosage: UNK
     Route: 055

REACTIONS (1)
  - Peritonitis [Recovering/Resolving]
